FAERS Safety Report 20314761 (Version 1)
Quarter: 2022Q1

REPORT INFORMATION
  Report Type: Spontaneous
  Country: CN (occurrence: CN)
  Receive Date: 20220110
  Receipt Date: 20220110
  Transmission Date: 20220423
  Serious: Yes (Other)
  Sender: FDA-Public Use
  Company Number: CN-BAXTER-2022BAX000187

PATIENT
  Age: 59 Year
  Sex: Male
  Weight: 65 kg

DRUGS (6)
  1. CYCLOPHOSPHAMIDE [Suspect]
     Active Substance: CYCLOPHOSPHAMIDE
     Indication: Enteropathy-associated T-cell lymphoma
     Dosage: CYCLOPHOSPHAMIDE INJECTION 0.8G PLUS NS100 ML
     Route: 041
     Dates: start: 20211112, end: 20211112
  2. SODIUM CHLORIDE [Suspect]
     Active Substance: SODIUM CHLORIDE
     Indication: Medication dilution
     Dosage: CYCLOPHOSPHAMIDE INJECTION 0.8G PLUS NS100 ML
     Route: 041
     Dates: start: 20211112, end: 20211112
  3. SODIUM CHLORIDE [Suspect]
     Active Substance: SODIUM CHLORIDE
     Dosage: EPIRUBICIN HYDROCHLORIDE FOR INJECTION 50 MG PLUS NS 50 ML
     Route: 041
     Dates: start: 20211112, end: 20211112
  4. SODIUM CHLORIDE [Suspect]
     Active Substance: SODIUM CHLORIDE
     Dosage: VINDESINE SULFATE FOR INJECTION 4 MG PLUS NS 50 ML
     Route: 041
     Dates: start: 20211112, end: 20211112
  5. EPIRUBICIN HYDROCHLORIDE [Suspect]
     Active Substance: EPIRUBICIN HYDROCHLORIDE
     Indication: Enteropathy-associated T-cell lymphoma
     Dosage: EPIRUBICIN HYDROCHLORIDE FOR INJECTION 50 MG PLUS NS 50 ML
     Route: 041
     Dates: start: 20211112, end: 20211112
  6. VINDESINE SULFATE [Suspect]
     Active Substance: VINDESINE SULFATE
     Indication: Enteropathy-associated T-cell lymphoma
     Dosage: VINDESINE SULFATE FOR INJECTION 4 MG PLUS NS 50 ML
     Route: 041
     Dates: start: 20211112, end: 20211112

REACTIONS (1)
  - Myelosuppression [Recovering/Resolving]

NARRATIVE: CASE EVENT DATE: 20211213
